FAERS Safety Report 9605086 (Version 4)
Quarter: 2015Q1

REPORT INFORMATION
  Report Type: Spontaneous
  Country: US (occurrence: US)
  Receive Date: 20131008
  Receipt Date: 20150209
  Transmission Date: 20150721
  Serious: Yes (Death, Hospitalization, Other)
  Sender: FDA-Public Use
  Company Number: US-009507513-1310USA000296

PATIENT
  Sex: Female

DRUGS (6)
  1. FOSAMAX [Suspect]
     Active Substance: ALENDRONATE SODIUM
     Indication: OSTEOPOROSIS
     Dosage: 70 MG, QW
     Route: 048
     Dates: start: 20010928, end: 200802
  2. CALCIUM (UNSPECIFIED) [Concomitant]
     Active Substance: CALCIUM
     Dosage: 600 MG, QD
     Dates: start: 2000, end: 20110427
  3. VITAMIN D [Concomitant]
     Active Substance: CHOLECALCIFEROL
     Dosage: UNK
     Dates: start: 2000, end: 20110427
  4. FOSAMAX PLUS D [Suspect]
     Active Substance: ALENDRONATE SODIUM\CHOLECALCIFEROL
     Indication: OSTEOPOROSIS
     Dosage: 70 MG, QW
     Route: 048
     Dates: start: 200504, end: 200701
  5. ALENDRONATE SODIUM. [Suspect]
     Active Substance: ALENDRONATE SODIUM
     Indication: OSTEOPOROSIS
     Dosage: 70 MG, QW
     Route: 048
     Dates: start: 200802, end: 201003
  6. CYANOCOBALAMIN. [Concomitant]
     Active Substance: CYANOCOBALAMIN
     Dosage: 500 MICROGRAM, QD
     Dates: start: 2000, end: 20110427

REACTIONS (8)
  - Cardiac failure congestive [Fatal]
  - Fall [Unknown]
  - Gastrointestinal disorder [Unknown]
  - Internal fixation of fracture [Unknown]
  - Chronic obstructive pulmonary disease [Not Recovered/Not Resolved]
  - Pelvic fracture [Unknown]
  - Femur fracture [Unknown]
  - Herpes zoster [Unknown]

NARRATIVE: CASE EVENT DATE: 2003
